FAERS Safety Report 9027304 (Version 2)
Quarter: 2013Q1

REPORT INFORMATION
  Report Type: Spontaneous
  Country: FR (occurrence: FR)
  Receive Date: 20130123
  Receipt Date: 20130325
  Transmission Date: 20140127
  Serious: Yes (Hospitalization, Other)
  Sender: FDA-Public Use
  Company Number: FR-ABBOTT-13P-056-1040054-00

PATIENT
  Age: 15 Year
  Sex: Female

DRUGS (5)
  1. DEPAKINE [Suspect]
     Indication: BIPOLAR DISORDER
     Dosage: 600 MG DAILY
     Route: 048
     Dates: start: 20121211, end: 20130111
  2. SEROPLEX [Concomitant]
     Indication: PRODUCT USED FOR UNKNOWN INDICATION
  3. THERALENE [Concomitant]
     Indication: PRODUCT USED FOR UNKNOWN INDICATION
     Dates: start: 20130104, end: 20130114
  4. TERCIAN [Concomitant]
     Indication: PRODUCT USED FOR UNKNOWN INDICATION
     Dates: start: 20130104, end: 20130111
  5. ATARAX [Concomitant]
     Indication: PRODUCT USED FOR UNKNOWN INDICATION
     Dates: start: 20130114

REACTIONS (2)
  - Anaemia [Recovered/Resolved]
  - Neutropenia [Recovered/Resolved]
